FAERS Safety Report 19731302 (Version 2)
Quarter: 2021Q3

REPORT INFORMATION
  Report Type: Spontaneous
  Country: DE (occurrence: DE)
  Receive Date: 20210820
  Receipt Date: 20210820
  Transmission Date: 20211014
  Serious: No
  Sender: FDA-Public Use
  Company Number: DE-JAZZ-2021-DE-000701

PATIENT
  Sex: Female

DRUGS (1)
  1. VYXEOS [Suspect]
     Active Substance: CYTARABINE\DAUNORUBICIN
     Indication: ACUTE MYELOID LEUKAEMIA
     Dosage: UNKNOWN DOSE AND FREQUENCY
     Route: 065
     Dates: start: 20201202

REACTIONS (2)
  - Erythema [Recovering/Resolving]
  - Muscle tightness [Recovering/Resolving]
